FAERS Safety Report 12523267 (Version 1)
Quarter: 2016Q3

REPORT INFORMATION
  Report Type: Spontaneous
  Country: IT (occurrence: IT)
  Receive Date: 20160702
  Receipt Date: 20160702
  Transmission Date: 20161109
  Serious: Yes (Hospitalization, Other)
  Sender: FDA-Public Use
  Company Number: IT-SUN PHARMACEUTICAL INDUSTRIES LTD-2016R1-119387

PATIENT
  Age: 12 Year
  Sex: Female

DRUGS (1)
  1. AMOXICILLIN/CLAVULANIC ACID [Suspect]
     Active Substance: AMOXICILLIN\CLAVULANIC ACID
     Indication: EPSTEIN-BARR VIRUS INFECTION
     Dosage: UNK
     Route: 065
     Dates: start: 2012

REACTIONS (5)
  - Neutrophil count increased [Unknown]
  - Rash maculo-papular [Unknown]
  - Type IV hypersensitivity reaction [Unknown]
  - Pyrexia [Unknown]
  - C-reactive protein increased [Unknown]
